FAERS Safety Report 18688737 (Version 1)
Quarter: 2020Q4

REPORT INFORMATION
  Report Type: Spontaneous
  Country: US (occurrence: US)
  Receive Date: 20201231
  Receipt Date: 20201231
  Transmission Date: 20210114
  Serious: No
  Sender: FDA-Public Use
  Company Number: None

PATIENT
  Age: 61 Year
  Sex: Female
  Weight: 100.6 kg

DRUGS (1)
  1. OXACILLIN [Suspect]
     Active Substance: OXACILLIN SODIUM
     Indication: BACTERAEMIA
     Route: 042
     Dates: start: 20201223, end: 20201230

REACTIONS (3)
  - Blood creatinine increased [None]
  - Eosinophilia [None]
  - White blood cell count increased [None]

NARRATIVE: CASE EVENT DATE: 20201230
